FAERS Safety Report 17924351 (Version 2)
Quarter: 2020Q2

REPORT INFORMATION
  Report Type: Spontaneous
  Country: CA (occurrence: CA)
  Receive Date: 20200622
  Receipt Date: 20200625
  Transmission Date: 20200714
  Serious: Yes (Other)
  Sender: FDA-Public Use
  Company Number: CA-PFIZER INC-2020236216

PATIENT
  Age: 20 Year
  Sex: Female

DRUGS (19)
  1. METHOTREXATE. [Suspect]
     Active Substance: METHOTREXATE
     Indication: JUVENILE IDIOPATHIC ARTHRITIS
     Dosage: UNK (20 MG./ 0.8 ML SYR)
  2. TYLENOL [Concomitant]
     Active Substance: ACETAMINOPHEN
     Indication: PAIN
     Dosage: UNK, AS NEEDED (2 DAILY PRN (AS NEEDED))
  3. METHOTREXATE SODIUM. [Suspect]
     Active Substance: METHOTREXATE SODIUM
     Dosage: 25MG  WEEKLY
     Route: 048
  4. PLAQUENIL S [Concomitant]
     Active Substance: HYDROXYCHLOROQUINE SULFATE
     Dosage: UNK
     Dates: start: 2019
  5. REMICADE [Concomitant]
     Active Substance: INFLIXIMAB
     Dosage: 400 MG, MONTHLY (INFUSIONS)
     Route: 042
     Dates: end: 201809
  6. DEPO-MEDROL [Concomitant]
     Active Substance: METHYLPREDNISOLONE ACETATE
     Dosage: UNK (80 MG/ML)
  7. METHOTREXATE SODIUM. [Suspect]
     Active Substance: METHOTREXATE SODIUM
     Indication: JUVENILE IDIOPATHIC ARTHRITIS
     Dosage: 20MG  WEEKLY
     Route: 048
  8. FOLIC ACID. [Concomitant]
     Active Substance: FOLIC ACID
     Dosage: 5 MG, WEEKLY
  9. AMITRIPTYLINE [Concomitant]
     Active Substance: AMITRIPTYLINE
     Dosage: 50 MG, DAILY
  10. ADVIL [IBUPROFEN] [Concomitant]
     Active Substance: IBUPROFEN
     Dosage: 1 TABLET DAILY PRN (AS NEEDED)
  11. ADALIMUMAB [Concomitant]
     Active Substance: ADALIMUMAB
     Dosage: 40 MG, WEEKLY
     Route: 058
  12. MELOXICAM. [Concomitant]
     Active Substance: MELOXICAM
     Dosage: 15 MG, 1X/DAY
     Route: 048
  13. HUMIRA [Concomitant]
     Active Substance: ADALIMUMAB
     Dosage: 40 MG  (EVERY WEEK)
     Route: 058
     Dates: start: 2016
  14. METHOTREXATE SODIUM. [Suspect]
     Active Substance: METHOTREXATE SODIUM
     Dosage: 20 MG, WEEKLY (10MG ORAL TABLET 2 ONCE A WEEK)
     Route: 048
  15. HUMIRA [Concomitant]
     Active Substance: ADALIMUMAB
     Dosage: 40 MG/0.8ML (EVERY 2 WEEKS)
     Route: 058
  16. ADVIL [IBUPROFEN] [Concomitant]
     Active Substance: IBUPROFEN
     Dosage: 2 TABLET, DAILY PRN
  17. METHOTREXATE SODIUM. [Suspect]
     Active Substance: METHOTREXATE SODIUM
     Dosage: 10 MG, WEEKLY
     Route: 048
  18. METHOTREXATE. [Suspect]
     Active Substance: METHOTREXATE
     Dosage: 25 MG, DAILY
     Route: 048
     Dates: start: 2017
  19. INFLIXIMAB HOSPIRA [Concomitant]
     Active Substance: INFLIXIMAB
     Dosage: UNK
     Dates: start: 2017, end: 2018

REACTIONS (21)
  - Tenderness [Unknown]
  - Rib fracture [Recovering/Resolving]
  - Concussion [Recovering/Resolving]
  - Synovitis [Unknown]
  - Haematocrit decreased [Unknown]
  - Jaw disorder [Unknown]
  - Headache [Unknown]
  - Depressed mood [Unknown]
  - Pain [Unknown]
  - Condition aggravated [Unknown]
  - Drug ineffective [Unknown]
  - Asthenia [Unknown]
  - Neuralgia [Unknown]
  - White blood cell count decreased [Unknown]
  - Rheumatoid arthritis [Unknown]
  - Therapeutic product effect incomplete [Unknown]
  - Heart rate increased [Recovered/Resolved]
  - Haemoglobin decreased [Unknown]
  - Weight increased [Unknown]
  - Road traffic accident [Unknown]
  - Fatigue [Unknown]

NARRATIVE: CASE EVENT DATE: 20180821
